FAERS Safety Report 24763995 (Version 4)
Quarter: 2025Q1

REPORT INFORMATION
  Report Type: Report from Study
  Country: US (occurrence: US)
  Receive Date: 20241223
  Receipt Date: 20250226
  Transmission Date: 20250409
  Serious: No
  Sender: NOVARTIS
  Company Number: US-002147023-NVSC2024US237803

PATIENT
  Sex: Female
  Weight: 77 kg

DRUGS (2)
  1. FABHALTA [Suspect]
     Active Substance: IPTACOPAN HYDROCHLORIDE
     Indication: Blood immunoglobulin A
     Dosage: 200 MG, BID
     Route: 048
     Dates: start: 20241129
  2. FABHALTA [Suspect]
     Active Substance: IPTACOPAN HYDROCHLORIDE
     Indication: Nephropathy
     Route: 048
     Dates: start: 202412

REACTIONS (4)
  - Dyspepsia [Not Recovered/Not Resolved]
  - Off label use [Unknown]
  - Illness [Not Recovered/Not Resolved]
  - Upper respiratory tract infection [Not Recovered/Not Resolved]
